FAERS Safety Report 4366269-7 (Version None)
Quarter: 2004Q2

REPORT INFORMATION
  Report Type: 
  Country: None (occurrence: None)
  Receive Date: 20040524
  Receipt Date: 20040308
  Transmission Date: 20050107
  Serious: Yes (Death, Life-Threatening, Hospitalization)
  Sender: FDA-Public Use
  Company Number: 2003183424JP

PATIENT
  Age: 74 Year
  Sex: Male
  Weight: 50 kg

DRUGS (2)
  1. CAMPTOSAR [Suspect]
     Indication: COLORECTAL CANCER
     Dosage: 60 MG, IV DRIP
     Route: 041
     Dates: start: 20031001, end: 20031001
  2. FURTULON (DOXIFLURIDINE) [Suspect]
     Indication: COLORECTAL CANCER
     Dosage: 800 MG, ORAL
     Route: 048
     Dates: start: 20031003, end: 20031007

REACTIONS (15)
  - BONE MARROW DEPRESSION [None]
  - DECREASED IMMUNE RESPONSIVENESS [None]
  - DERMATITIS [None]
  - DIARRHOEA [None]
  - GASTROINTESTINAL HAEMORRHAGE [None]
  - GRANULOCYTOPENIA [None]
  - HAEMORRHAGIC DIATHESIS [None]
  - HEPATIC FUNCTION ABNORMAL [None]
  - LEUKOPENIA [None]
  - PIGMENTATION DISORDER [None]
  - PNEUMONIA [None]
  - RASH [None]
  - SEPSIS [None]
  - STOMATITIS [None]
  - THROMBOCYTOPENIA [None]
